FAERS Safety Report 4613013-1 (Version None)
Quarter: 2005Q1

REPORT INFORMATION
  Report Type: 
  Country: None (occurrence: None)
  Receive Date: 20050318
  Receipt Date: 20050310
  Transmission Date: 20050727
  Serious: Yes (Hospitalization)
  Sender: FDA-Public Use
  Company Number: FR-MERCK-0503FRA00044

PATIENT
  Age: 77 Year
  Sex: Male
  Weight: 60 kg

DRUGS (11)
  1. FOSAMAX [Suspect]
     Route: 048
     Dates: start: 20050122, end: 20050131
  2. ZOLPIDEM TARTRATE [Suspect]
     Route: 048
     Dates: end: 20050216
  3. HYDROXYZINE HYDROCHLORIDE [Suspect]
     Route: 048
     Dates: end: 20050216
  4. ALFUZOSIN HYDROCHLORIDE [Concomitant]
     Route: 065
  5. THIAMINE [Concomitant]
     Route: 065
  6. PYRIDOXINE [Concomitant]
     Route: 065
  7. ASPIRIN LYSINE [Concomitant]
     Route: 065
  8. OMEPRAZOLE SODIUM [Concomitant]
     Route: 065
  9. ALLOPURINOL [Concomitant]
     Route: 065
  10. NICERGOLINE [Concomitant]
     Route: 065
  11. LERCANIDIPINE [Concomitant]
     Route: 065

REACTIONS (4)
  - ACCIDENTAL OVERDOSE [None]
  - AGITATION [None]
  - CONFUSIONAL STATE [None]
  - DRUG INEFFECTIVE [None]
